FAERS Safety Report 8514054-4 (Version None)
Quarter: 2012Q3

REPORT INFORMATION
  Report Type: 
  Country: None (occurrence: None)
  Receive Date: 20120717
  Receipt Date: 20120706
  Transmission Date: 20120928
  Serious: No
  Sender: FDA-Public Use
  Company Number: US-009507513-1207USA002051

PATIENT

DRUGS (1)
  1. REMERON [Suspect]
     Indication: DEPRESSION
     Dosage: UNK
     Route: 048
     Dates: start: 20030101

REACTIONS (2)
  - VIRAL INFECTION [None]
  - HEPATIC ENZYME INCREASED [None]
